FAERS Safety Report 8684636 (Version 3)
Quarter: 2013Q2

REPORT INFORMATION
  Report Type: Spontaneous
  Country: US (occurrence: US)
  Receive Date: 20120726
  Receipt Date: 20130430
  Transmission Date: 20140414
  Serious: Yes (Other)
  Sender: FDA-Public Use
  Company Number: US-ROCHE-1056153

PATIENT
  Age: 17 Year
  Sex: Male
  Weight: 68.1 kg

DRUGS (1)
  1. ACCUTANE [Suspect]
     Indication: ACNE
     Route: 048
     Dates: start: 20000905, end: 20001226

REACTIONS (9)
  - Crohn^s disease [Unknown]
  - Inflammatory bowel disease [Unknown]
  - Anal fistula [Unknown]
  - Irritable bowel syndrome [Unknown]
  - Xerosis [Unknown]
  - Lip dry [Unknown]
  - Dry skin [Unknown]
  - Blood triglycerides increased [Unknown]
  - Blood triglycerides decreased [Unknown]
